FAERS Safety Report 8461206-8 (Version None)
Quarter: 2012Q2

REPORT INFORMATION
  Report Type: 
  Country: None (occurrence: None)
  Receive Date: 20120618
  Receipt Date: 20120618
  Transmission Date: 20120825
  Serious: No
  Sender: FDA-Public Use
  Company Number: None

PATIENT
  Age: 44 Year
  Sex: Female
  Weight: 76.2043 kg

DRUGS (4)
  1. NEXIUM [Suspect]
     Indication: GASTROOESOPHAGEAL REFLUX DISEASE
     Dosage: 1 CAPSULE -40 MG- TWICE A DAY PO
     Route: 048
     Dates: start: 20120509, end: 20120101
  2. NEXIUM [Suspect]
     Indication: GASTROINTESTINAL DISORDER
     Dosage: 1 CAPSULE -40 MG- TWICE A DAY PO
     Route: 048
     Dates: start: 20120509, end: 20120101
  3. XIFAXAN [Suspect]
     Indication: GASTROINTESTINAL DISORDER
     Dosage: 2 TABLETS -400 MG- THREE TIMES A DAY PO
     Route: 048
     Dates: start: 20120607, end: 20120618
  4. XIFAXAN [Suspect]
     Indication: OVERGROWTH BACTERIAL
     Dosage: 2 TABLETS -400 MG- THREE TIMES A DAY PO
     Route: 048
     Dates: start: 20120607, end: 20120618

REACTIONS (5)
  - NAUSEA [None]
  - ABDOMINAL DISTENSION [None]
  - DIARRHOEA [None]
  - ABDOMINAL PAIN [None]
  - DIZZINESS [None]
